FAERS Safety Report 12110042 (Version 1)
Quarter: 2016Q1

REPORT INFORMATION
  Report Type: Spontaneous
  Country: US (occurrence: None)
  Receive Date: 20160223
  Receipt Date: 20160223
  Transmission Date: 20160526
  Serious: Yes (Other)
  Sender: FDA-Public Use
  Company Number: None

PATIENT
  Age: 43 Year
  Sex: Female

DRUGS (2)
  1. CORALITE MEDICATED HEAT [Suspect]
     Active Substance: CAPSAICIN
     Indication: ARTHRALGIA
     Dosage: A MINUTE OR TWO
  2. CORALITE MEDICATED HEAT [Suspect]
     Active Substance: CAPSAICIN
     Indication: BACK PAIN
     Dosage: A MINUTE OR TWO

REACTIONS (3)
  - Burns second degree [None]
  - Burns first degree [None]
  - Application site burn [None]

NARRATIVE: CASE EVENT DATE: 20150417
